FAERS Safety Report 8817381 (Version 1)
Quarter: 2012Q4

REPORT INFORMATION
  Report Type: 
  Country: JP (occurrence: JP)
  Receive Date: 20121004
  Receipt Date: 20121004
  Transmission Date: 20130627
  Serious: Yes (Other)
  Sender: FDA-Public Use
  Company Number: JP-TEVA-361425ISR

PATIENT
  Age: 67 Year
  Sex: Female

DRUGS (4)
  1. LAMOTRIGINE [Suspect]
     Indication: BIPOLAR DISORDER
     Dosage: 25mg every 2 days
     Route: 065
  2. RISPERIDONE [Interacting]
     Indication: BIPOLAR DISORDER
     Dosage: 5 Milligram Daily; 5 mg/day (starting dosage not stated, gradually increased to 5mg/day)
     Route: 065
  3. RISPERIDONE [Interacting]
     Indication: BIPOLAR DISORDER
     Dosage: 3 Milligram Daily; 3 mg/day (gradually reduced from 5mg/day within 1mo)
     Route: 065
  4. BIPERIDEN [Concomitant]
     Indication: BIPOLAR DISORDER
     Dosage: 1 mg/day
     Route: 065

REACTIONS (2)
  - Neuroleptic malignant syndrome [Recovered/Resolved]
  - Drug interaction [Recovered/Resolved]
